FAERS Safety Report 16959184 (Version 1)
Quarter: 2019Q4

REPORT INFORMATION
  Report Type: Spontaneous
  Country: US (occurrence: US)
  Receive Date: 20191024
  Receipt Date: 20191024
  Transmission Date: 20200122
  Serious: No
  Sender: FDA-Public Use
  Company Number: NVSC2019US013725

PATIENT
  Age: 78 Year
  Sex: Male

DRUGS (5)
  1. NICOTINAMIDE [Suspect]
     Active Substance: NIACINAMIDE
     Indication: PEMPHIGOID
     Dosage: 500 MG, BID
     Route: 065
  2. PREDNISONE. [Suspect]
     Active Substance: PREDNISONE
     Indication: PRURITUS
     Dosage: 60 MG, QD
     Route: 065
  3. DOXYCYCLINE. [Suspect]
     Active Substance: DOXYCYCLINE
     Indication: PEMPHIGOID
     Dosage: 100 MG, BID
     Route: 065
  4. PREDNISONE. [Suspect]
     Active Substance: PREDNISONE
     Dosage: 30 MG, QD
     Route: 065
  5. TRIAMCINOLONE [Concomitant]
     Active Substance: TRIAMCINOLONE
     Indication: PRURITUS
     Dosage: UNK MG
     Route: 065

REACTIONS (2)
  - Pruritus [Unknown]
  - Drug ineffective for unapproved indication [Unknown]
